FAERS Safety Report 5597391-5 (Version None)
Quarter: 2007Q4

REPORT INFORMATION
  Report Type: 
  Country: None (occurrence: None)
  Receive Date: 20071231
  Receipt Date: 20070919
  Transmission Date: 20080405
  Serious: No
  Sender: FDA-Public Use
  Company Number: SPV1-2007-04222

PATIENT
  Age: 34 Year
  Sex: Female
  Weight: 55.3 kg

DRUGS (4)
  1. VYVANSE [Suspect]
     Indication: FIBROMYALGIA
     Dosage: 50 MG, 1X/DAY:QD, ORAL ; 50 MG, 1X/DAY:QD, ORAL
     Route: 048
     Dates: start: 20070915, end: 20070916
  2. VYVANSE [Suspect]
     Indication: FIBROMYALGIA
     Dosage: 50 MG, 1X/DAY:QD, ORAL ; 50 MG, 1X/DAY:QD, ORAL
     Route: 048
     Dates: start: 20070918
  3. ULTRAM ER (TRAMADOL HYDROCHLORIDE) [Concomitant]
  4. PROMETRIUM [Concomitant]

REACTIONS (3)
  - LIP SWELLING [None]
  - OFF LABEL USE [None]
  - RASH GENERALISED [None]
